FAERS Safety Report 6406583-4 (Version None)
Quarter: 2009Q4

REPORT INFORMATION
  Report Type: 
  Country: None (occurrence: None)
  Receive Date: 20091015
  Receipt Date: 20091002
  Transmission Date: 20100525
  Serious: Yes (Hospitalization)
  Sender: FDA-Public Use
  Company Number: 231482J09USA

PATIENT
  Age: 48 Year
  Sex: Female
  Weight: 64 kg

DRUGS (8)
  1. REBIF [Suspect]
     Indication: MULTIPLE SCLEROSIS
     Dosage: 44 MCG ; 22 MCG, 3 IN 1 WEEKS, SUBCUTANEOUS
     Route: 058
     Dates: start: 20090731, end: 20090801
  2. REBIF [Suspect]
     Indication: MULTIPLE SCLEROSIS
     Dosage: 44 MCG ; 22 MCG, 3 IN 1 WEEKS, SUBCUTANEOUS
     Route: 058
     Dates: start: 20090801, end: 20090901
  3. LIPITOR [Suspect]
     Indication: BLOOD CHOLESTEROL INCREASED
     Dates: end: 20090901
  4. AMIODARONE(AMIODARONE /00133101/) [Suspect]
     Indication: ARRHYTHMIA
     Dates: end: 20090901
  5. NEURONTIN [Concomitant]
  6. BACLOFEN [Concomitant]
  7. FOLIC ACID [Concomitant]
  8. VITAMIN B12 [Concomitant]

REACTIONS (1)
  - HEPATITIS [None]
